FAERS Safety Report 7948281-1 (Version None)
Quarter: 2011Q4

REPORT INFORMATION
  Report Type: 
  Country: None (occurrence: None)
  Receive Date: 20111130
  Receipt Date: 20111121
  Transmission Date: 20120403
  Serious: Yes (Other)
  Sender: FDA-Public Use
  Company Number: US-PFIZER INC-2011284943

PATIENT
  Sex: Female
  Weight: 57 kg

DRUGS (1)
  1. LEVOXYL [Suspect]
     Dosage: 75 UG, 1X/DAY
     Route: 048
     Dates: start: 19820101

REACTIONS (3)
  - HEART RATE INCREASED [None]
  - HYPERTHYROIDISM [None]
  - FEELING JITTERY [None]
